FAERS Safety Report 6533405-3 (Version None)
Quarter: 2010Q1

REPORT INFORMATION
  Report Type: 
  Country: None (occurrence: None)
  Receive Date: 20100111
  Receipt Date: 20091222
  Transmission Date: 20100710
  Serious: Yes (Hospitalization)
  Sender: FDA-Public Use
  Company Number: US-ROCHE-677634

PATIENT

DRUGS (2)
  1. CAPECITABINE [Suspect]
     Route: 065
  2. ERLOTINIB [Suspect]
     Route: 065

REACTIONS (2)
  - HYPOTENSION [None]
  - SYNCOPE [None]
